FAERS Safety Report 12505836 (Version 1)
Quarter: 2016Q2

REPORT INFORMATION
  Report Type: Spontaneous
  Country: TR (occurrence: TR)
  Receive Date: 20160628
  Receipt Date: 20160628
  Transmission Date: 20160815
  Serious: Yes (Hospitalization)
  Sender: FDA-Public Use
  Company Number: TR-ELI_LILLY_AND_COMPANY-TR201606009637

PATIENT
  Age: 59 Year
  Sex: Male

DRUGS (1)
  1. OLANZAPINE. [Suspect]
     Active Substance: OLANZAPINE
     Indication: PSYCHOTIC DISORDER
     Dosage: 10 MG, QD
     Route: 065

REACTIONS (3)
  - Rebound psychosis [Recovering/Resolving]
  - Tardive dyskinesia [Recovered/Resolved]
  - Drug withdrawal syndrome [Recovering/Resolving]
